FAERS Safety Report 8417656-9 (Version None)
Quarter: 2012Q2

REPORT INFORMATION
  Report Type: 
  Country: None (occurrence: None)
  Receive Date: 20120606
  Receipt Date: 20120529
  Transmission Date: 20120825
  Serious: Yes (Hospitalization, Other)
  Sender: FDA-Public Use
  Company Number: JP-VERTEX PHARMACEUTICALS INC.-AE-2012-006229

PATIENT
  Age: 63 Year
  Sex: Female

DRUGS (16)
  1. REBETOL [Concomitant]
     Route: 048
     Dates: start: 20120409, end: 20120415
  2. REBETOL [Concomitant]
     Route: 048
     Dates: start: 20120313, end: 20120408
  3. PEG-INTRON [Concomitant]
     Route: 051
     Dates: start: 20120208, end: 20120215
  4. PEG-INTRON [Concomitant]
     Route: 051
     Dates: start: 20120501
  5. REBETOL [Concomitant]
     Route: 048
     Dates: start: 20120229, end: 20120312
  6. REBETOL [Concomitant]
     Route: 048
     Dates: start: 20120514
  7. LOXONIN [Concomitant]
     Route: 048
     Dates: start: 20120229, end: 20120422
  8. TELAVIC (TELAPREVIR) [Suspect]
     Indication: HEPATITIS C
     Route: 048
     Dates: start: 20120117, end: 20120229
  9. REBETOL [Concomitant]
     Route: 048
     Dates: start: 20120501, end: 20120506
  10. REBETOL [Concomitant]
     Route: 048
     Dates: start: 20120507, end: 20120513
  11. PEG-INTRON [Concomitant]
     Route: 051
     Dates: start: 20120416, end: 20120430
  12. REBETOL [Concomitant]
     Indication: HEPATITIS C
     Route: 048
     Dates: start: 20120117, end: 20120229
  13. PEG-INTRON [Concomitant]
     Indication: HEPATITIS C
     Route: 051
     Dates: start: 20120117, end: 20120201
  14. PEG-INTRON [Concomitant]
     Route: 051
     Dates: start: 20120229, end: 20120415
  15. PAXIL [Concomitant]
     Route: 048
  16. TELAVIC (TELAPREVIR) [Suspect]
     Route: 048
     Dates: start: 20120229, end: 20120415

REACTIONS (2)
  - MALAISE [None]
  - ANAEMIA [None]
